FAERS Safety Report 6377827-2 (Version None)
Quarter: 2009Q3

REPORT INFORMATION
  Report Type: 
  Country: None (occurrence: None)
  Receive Date: 20090925
  Receipt Date: 20090915
  Transmission Date: 20100115
  Serious: Yes (Hospitalization)
  Sender: FDA-Public Use
  Company Number: US-ELI_LILLY_AND_COMPANY-US200909003898

PATIENT
  Age: 45 Year
  Sex: Male

DRUGS (4)
  1. ZYPREXA [Suspect]
     Dosage: 20 MG, UNK
  2. ZYPREXA [Suspect]
     Dosage: 30 MG, UNK
  3. DEPAKOTE [Concomitant]
  4. NICOTINE [Concomitant]

REACTIONS (4)
  - AGGRESSION [None]
  - INHIBITORY DRUG INTERACTION [None]
  - OVERDOSE [None]
  - PSYCHIATRIC DECOMPENSATION [None]
